FAERS Safety Report 25101800 (Version 1)
Quarter: 2025Q1

REPORT INFORMATION
  Report Type: Spontaneous
  Country: US (occurrence: US)
  Receive Date: 20250320
  Receipt Date: 20250320
  Transmission Date: 20250409
  Serious: Yes (Other)
  Sender: ALCON
  Company Number: US-ALCON LABORATORIES-ALC2024US002197

PATIENT
  Age: 61 Year
  Sex: Female

DRUGS (2)
  1. SYSTANE (HYPROMELLOSE 2910 (4000 MPA.S)) [Suspect]
     Active Substance: HYPROMELLOSE 2910 (4000 MPA.S)
     Indication: Product used for unknown indication
     Route: 047
  2. DEXTRAN\HYPROMELLOSES [Suspect]
     Active Substance: DEXTRAN\HYPROMELLOSES
     Indication: Product used for unknown indication
     Route: 047

REACTIONS (1)
  - Keratopathy [Unknown]
